FAERS Safety Report 5373601-4 (Version None)
Quarter: 2007Q2

REPORT INFORMATION
  Report Type: 
  Country: None (occurrence: None)
  Receive Date: 20070626
  Receipt Date: 20060918
  Transmission Date: 20071010
  Serious: Yes (Hospitalization)
  Sender: FDA-Public Use
  Company Number: 463887

PATIENT
  Age: 47 Year
  Sex: Female

DRUGS (1)
  1. KLONOPIN [Suspect]
     Indication: DRUG USE FOR UNKNOWN INDICATION
     Dosage: 50 DOSE FORM ORAL
     Route: 048
     Dates: start: 20060506, end: 20060506

REACTIONS (2)
  - ADVERSE EVENT [None]
  - OVERDOSE [None]
